FAERS Safety Report 4436036-4 (Version None)
Quarter: 2004Q3

REPORT INFORMATION
  Report Type: 
  Country: None (occurrence: None)
  Receive Date: 20040726
  Receipt Date: 20040416
  Transmission Date: 20050211
  Serious: No
  Sender: FDA-Public Use
  Company Number: USA040465165

PATIENT
  Age: 82 Year
  Sex: Female

DRUGS (7)
  1. FORTEO [Suspect]
     Indication: OSTEOPOROSIS
     Dates: start: 20040201
  2. PREDNISONE [Concomitant]
  3. HYDROXYCHLOROQUINE SULFATE [Concomitant]
  4. CHOLINE MAGNESIUM TRISALICYLATE [Concomitant]
  5. PROTONIX [Concomitant]
  6. PROCAINAMIDE [Concomitant]
  7. FERROUS SULFATE TAB [Concomitant]

REACTIONS (2)
  - ERYTHEMA [None]
  - RASH MACULAR [None]
